FAERS Safety Report 6519437-X (Version None)
Quarter: 2009Q4

REPORT INFORMATION
  Report Type: 
  Country: None (occurrence: None)
  Receive Date: 20091228
  Receipt Date: 20091214
  Transmission Date: 20100525
  Serious: Yes (Death)
  Sender: FDA-Public Use
  Company Number: US-PFIZER INC-2009298978

PATIENT
  Age: 102 Year
  Sex: Female

DRUGS (1)
  1. ALDACTONE [Suspect]

REACTIONS (2)
  - DEATH [None]
  - MEDICATION RESIDUE [None]
